FAERS Safety Report 6673847-9 (Version None)
Quarter: 2010Q2

REPORT INFORMATION
  Report Type: 
  Country: None (occurrence: None)
  Receive Date: 20100407
  Receipt Date: 20100329
  Transmission Date: 20101027
  Serious: Yes (Life-Threatening)
  Sender: FDA-Public Use
  Company Number: 2010SP019144

PATIENT
  Age: 10 Year
  Sex: Female
  Weight: 41.2773 kg

DRUGS (2)
  1. ASMANEX TWISTHALER [Suspect]
     Indication: ASTHMA
     Dosage: PO
     Route: 048
     Dates: start: 20091119, end: 20091125
  2. ALBUTEROL [Concomitant]

REACTIONS (2)
  - CONDITION AGGRAVATED [None]
  - DYSPNOEA [None]
